FAERS Safety Report 25104884 (Version 1)
Quarter: 2025Q1

REPORT INFORMATION
  Report Type: Spontaneous
  Country: US (occurrence: None)
  Receive Date: 20250320
  Receipt Date: 20250320
  Transmission Date: 20250408
  Serious: Yes (Other)
  Sender: FDA-CTU
  Company Number: None

PATIENT
  Age: 78 Year
  Sex: Female
  Weight: 72.9 kg

DRUGS (2)
  1. POMALYST [Suspect]
     Active Substance: POMALIDOMIDE
     Dates: start: 20231222, end: 20240506
  2. POMALYST [Concomitant]
     Active Substance: POMALIDOMIDE
     Dates: start: 20231222, end: 20240506

REACTIONS (1)
  - Alopecia [None]

NARRATIVE: CASE EVENT DATE: 20241231
